FAERS Safety Report 25467630 (Version 2)
Quarter: 2025Q3

REPORT INFORMATION
  Report Type: Spontaneous
  Country: RU (occurrence: RU)
  Receive Date: 20250623
  Receipt Date: 20250815
  Transmission Date: 20251021
  Serious: Yes (Life-Threatening, Hospitalization, Other)
  Sender: BAUSCH AND LOMB
  Company Number: RU-MLMSERVICE-20250612-PI536494-00218-1

PATIENT
  Age: 34 Year
  Sex: Female

DRUGS (11)
  1. DEXAMETHASONE [Suspect]
     Active Substance: DEXAMETHASONE
     Indication: Central nervous system leukaemia
     Route: 065
     Dates: start: 20230923, end: 20230927
  2. DEXAMETHASONE [Suspect]
     Active Substance: DEXAMETHASONE
     Indication: Chemotherapy
  3. METHOTREXATE [Suspect]
     Active Substance: METHOTREXATE
     Indication: Central nervous system leukaemia
     Route: 037
     Dates: start: 20230923, end: 20230927
  4. METHOTREXATE [Suspect]
     Active Substance: METHOTREXATE
     Indication: Chemotherapy
  5. CYTARABINE [Suspect]
     Active Substance: CYTARABINE
     Indication: Central nervous system leukaemia
     Route: 037
     Dates: start: 20230923, end: 20230927
  6. CYTARABINE [Suspect]
     Active Substance: CYTARABINE
     Indication: Chemotherapy
  7. ETOPOSIDE [Suspect]
     Active Substance: ETOPOSIDE
     Indication: Plasmablastic lymphoma
     Route: 065
     Dates: start: 202309, end: 2023
  8. VINCRISTINE [Suspect]
     Active Substance: VINCRISTINE
     Indication: Plasmablastic lymphoma
     Route: 065
     Dates: start: 202309, end: 2023
  9. CYCLOPHOSPHAMIDE [Suspect]
     Active Substance: CYCLOPHOSPHAMIDE
     Indication: Plasmablastic lymphoma
     Route: 065
     Dates: start: 202309, end: 2023
  10. DOXORUBICIN [Suspect]
     Active Substance: DOXORUBICIN
     Indication: Plasmablastic lymphoma
     Route: 065
     Dates: start: 202309, end: 2023
  11. PREDNISONE [Suspect]
     Active Substance: PREDNISONE
     Indication: Plasmablastic lymphoma
     Route: 065
     Dates: start: 202309, end: 2023

REACTIONS (11)
  - Febrile neutropenia [Unknown]
  - Granulocytopenia [Unknown]
  - Posterior reversible encephalopathy syndrome [Unknown]
  - Osmotic demyelination syndrome [Unknown]
  - Diabetes insipidus [Unknown]
  - Cytotoxic lesions of corpus callosum [Unknown]
  - Thrombocytopenia [Unknown]
  - Anaemia [Unknown]
  - Hypotension [Unknown]
  - Enterocolitis [Unknown]
  - Oesophagitis ulcerative [Unknown]
